FAERS Safety Report 5944277-X (Version None)
Quarter: 2008Q4

REPORT INFORMATION
  Report Type: 
  Country: None (occurrence: None)
  Receive Date: 20081104
  Receipt Date: 20081027
  Transmission Date: 20090506
  Serious: Yes (Other)
  Sender: FDA-Public Use
  Company Number: TCI2008A05431

PATIENT
  Age: 67 Year
  Sex: Female

DRUGS (5)
  1. ACTOS [Suspect]
     Indication: TYPE 2 DIABETES MELLITUS
     Dosage: 15 MG (15 MG, 1 D), ORAL
     Route: 048
     Dates: start: 20080403, end: 20080508
  2. SULFONAMIDES, UREA DERIVATIVES [Concomitant]
  3. CALCIUM CHANNEL BLOCKERS [Concomitant]
  4. ANTIHYPERTENSIVES [Concomitant]
  5. ANGIOTENSIN II ANTAGONISTS [Concomitant]

REACTIONS (2)
  - BRAIN NATRIURETIC PEPTIDE INCREASED [None]
  - OEDEMA PERIPHERAL [None]
